FAERS Safety Report 10646440 (Version 2)
Quarter: 2015Q1

REPORT INFORMATION
  Report Type: Spontaneous
  Country: US (occurrence: US)
  Receive Date: 20141211
  Receipt Date: 20150106
  Transmission Date: 20150720
  Serious: Yes (Death, Other)
  Sender: FDA-Public Use
  Company Number: US-BAYER-2014-182486

PATIENT
  Age: 91 Year
  Sex: Female
  Weight: 48 kg

DRUGS (1)
  1. BAYER GENUINE ASPIRIN [Suspect]
     Active Substance: ASPIRIN
     Indication: ANALGESIC THERAPY
     Dosage: UNK, PRN
     Route: 048

REACTIONS (3)
  - Wrong technique in drug usage process [None]
  - Haemorrhage [Recovered/Resolved]
  - Death [Fatal]

NARRATIVE: CASE EVENT DATE: 2011
